FAERS Safety Report 19500479 (Version 1)
Quarter: 2021Q3

REPORT INFORMATION
  Report Type: Spontaneous
  Country: CN (occurrence: CN)
  Receive Date: 20210706
  Receipt Date: 20210706
  Transmission Date: 20211014
  Serious: Yes (Hospitalization, Other)
  Sender: FDA-Public Use
  Company Number: CN-BAXTER-2021BAX018540

PATIENT
  Age: 58 Year
  Sex: Male
  Weight: 54 kg

DRUGS (5)
  1. ENDOXAN [Suspect]
     Active Substance: CYCLOPHOSPHAMIDE
     Indication: ACUTE LYMPHOCYTIC LEUKAEMIA
     Dosage: HYPER?CVAD (CYCLEA) + PEGASPARGASE REGIMEN: CYCLOPHOSPHAMIDE 480 MG + SODIUM CHLORIDE 100 ML (D1?3)
     Route: 041
     Dates: start: 20210608, end: 20210610
  2. 0.9% SODIUM CHLORIDE INJECTION [Suspect]
     Active Substance: SODIUM CHLORIDE
     Dosage: HYPER?CVAD (CYCLEA) + PEGASPARGASE REGIMEN: VINCRISTINE SULFATE 2MG + SODIUM CHLORIDE 50 ML (D4/D11)
     Route: 041
     Dates: start: 20210611, end: 20210611
  3. PEGASPARGASE [Suspect]
     Active Substance: PEGASPARGASE
     Indication: ACUTE LYMPHOCYTIC LEUKAEMIA
     Dosage: HYPER?CVAD (CYCLEA) + PEGASPARGASE REGIMEN CHEMOTHERAPY D1
     Route: 058
     Dates: start: 20210608, end: 20210608
  4. 0.9% SODIUM CHLORIDE INJECTION [Suspect]
     Active Substance: SODIUM CHLORIDE
     Indication: MEDICATION DILUTION
     Dosage: HYPER?CVAD (CYCLEA) + PEGASPARGASE REGIMEN: CYCLOPHOSPHAMIDE 480 MG + SODIUM CHLORIDE 100 ML (D1?3).
     Route: 041
     Dates: start: 20210608, end: 20210610
  5. VINCRISTINE SULFATE. [Suspect]
     Active Substance: VINCRISTINE SULFATE
     Indication: ACUTE LYMPHOCYTIC LEUKAEMIA
     Dosage: HYPER?CVAD (CYCLEA) + PEGASPARGASE REGIMEN: VINCRISTINE SULFATE 2MG + SODIUM CHLORIDE 50ML (D4/D11).
     Route: 041
     Dates: start: 20210611, end: 20210611

REACTIONS (3)
  - Transaminases increased [Not Recovered/Not Resolved]
  - Gallbladder oedema [Unknown]
  - Blood bilirubin increased [Not Recovered/Not Resolved]

NARRATIVE: CASE EVENT DATE: 20210621
